FAERS Safety Report 21702079 (Version 2)
Quarter: 2022Q4

REPORT INFORMATION
  Report Type: Spontaneous
  Country: US (occurrence: US)
  Receive Date: 20221208
  Receipt Date: 20221227
  Transmission Date: 20230113
  Serious: No
  Sender: FDA-Public Use
  Company Number: US-INCYTE CORPORATION-2022IN011722

PATIENT

DRUGS (2)
  1. JAKAFI [Suspect]
     Active Substance: RUXOLITINIB
     Indication: Myelofibrosis
     Dosage: UNK
     Route: 048
     Dates: end: 202211
  2. VONJO [Concomitant]
     Active Substance: PACRITINIB
     Indication: Product used for unknown indication
     Route: 065

REACTIONS (6)
  - Feeling abnormal [Unknown]
  - Pain [Unknown]
  - Asthenia [Unknown]
  - Malaise [Unknown]
  - Gastric disorder [Unknown]
  - Pain in extremity [Unknown]
